FAERS Safety Report 4948260-2 (Version None)
Quarter: 2006Q1

REPORT INFORMATION
  Report Type: 
  Country: None (occurrence: None)
  Receive Date: 20060127
  Receipt Date: 20050218
  Transmission Date: 20060701
  Serious: Yes (Hospitalization)
  Sender: FDA-Public Use
  Company Number: 05-02-0255

PATIENT
  Age: 43 Year
  Sex: Male

DRUGS (4)
  1. CLOZAPINE [Suspect]
     Indication: SCHIZOPHRENIA
     Dosage: 575MG QD, ORAL
     Route: 048
     Dates: start: 20010101
  2. BENZATROPINE (BENZATROPINE) (UNKNOWN) [Suspect]
     Dosage: 1MG QAM;   2MG HS
  3. CLONAZEPAM (CLONAZEPAM) (UNKNOWN) [Suspect]
     Dosage: 1MG HS PRN, ORAL
     Route: 048
  4. LEXAPRO [Suspect]
     Dosage: 10MG QAM, ORAL
     Route: 048

REACTIONS (2)
  - CONSTIPATION [None]
  - INTESTINAL OBSTRUCTION [None]
